FAERS Safety Report 9572676 (Version 1)
Quarter: 2013Q3

REPORT INFORMATION
  Report Type: Spontaneous
  Country: US (occurrence: None)
  Receive Date: 20130930
  Receipt Date: 20130930
  Transmission Date: 20140515
  Serious: Yes (Hospitalization)
  Sender: FDA-Public Use
  Company Number: None

PATIENT
  Age: 85 Year
  Sex: Male
  Weight: 87.4 kg

DRUGS (1)
  1. HYDRALAZINE [Suspect]
     Indication: HYPERTENSION
     Route: 048
     Dates: start: 20130714, end: 20130819

REACTIONS (2)
  - Leukopenia [None]
  - Neutropenia [None]
